FAERS Safety Report 16253802 (Version 1)
Quarter: 2019Q2

REPORT INFORMATION
  Report Type: Spontaneous
  Country: PT (occurrence: PT)
  Receive Date: 20190430
  Receipt Date: 20190430
  Transmission Date: 20190711
  Serious: Yes (Other)
  Sender: FDA-Public Use
  Company Number: PT-ROCHE-2309220

PATIENT
  Age: 56 Year
  Sex: Male

DRUGS (2)
  1. LEVOFLOXACIN. [Concomitant]
     Active Substance: LEVOFLOXACIN
     Route: 065
  2. MYCOPHENOLATE MOFETIL. [Suspect]
     Active Substance: MYCOPHENOLATE MOFETIL
     Indication: APLASTIC ANAEMIA
     Route: 065

REACTIONS (4)
  - Infection [Unknown]
  - Compartment syndrome [Unknown]
  - Off label use [Unknown]
  - Intentional product use issue [Unknown]
